FAERS Safety Report 6534504-2 (Version None)
Quarter: 2010Q1

REPORT INFORMATION
  Report Type: 
  Country: None (occurrence: None)
  Receive Date: 20100112
  Receipt Date: 20100105
  Transmission Date: 20100710
  Serious: Yes (Other)
  Sender: FDA-Public Use
  Company Number: GB-PFIZER INC-2010002422

PATIENT
  Sex: Male

DRUGS (1)
  1. ISTIN [Suspect]

REACTIONS (2)
  - DYSPHAGIA [None]
  - THROAT CANCER [None]
